FAERS Safety Report 4329105-0 (Version None)
Quarter: 2004Q1

REPORT INFORMATION
  Report Type: 
  Country: None (occurrence: None)
  Receive Date: 20040331
  Receipt Date: 20040331
  Transmission Date: 20041129
  Serious: Yes (Hospitalization)
  Sender: FDA-Public Use
  Company Number: None

PATIENT
  Sex: Female
  Weight: 61.2356 kg

DRUGS (2)
  1. SERZONE [Suspect]
     Indication: BIPOLAR DISORDER
     Dosage: 100 MG ORALLY BID
     Route: 048
  2. SEROQUEL [Suspect]

REACTIONS (5)
  - ANXIETY [None]
  - CONFUSIONAL STATE [None]
  - DEPRESSION [None]
  - MEDICATION ERROR [None]
  - VISUAL DISTURBANCE [None]
